FAERS Safety Report 6497512-6 (Version None)
Quarter: 2009Q4

REPORT INFORMATION
  Report Type: 
  Country: None (occurrence: None)
  Receive Date: 20091215
  Receipt Date: 20091211
  Transmission Date: 20100525
  Serious: Yes (Hospitalization)
  Sender: FDA-Public Use
  Company Number: US-B.I. PHARMACEUTICALS,INC./RIDGEFIELD-2009-BP-11276BP

PATIENT
  Age: 68 Year
  Sex: Female

DRUGS (13)
  1. SPIRIVA [Suspect]
     Indication: CHRONIC OBSTRUCTIVE PULMONARY DISEASE
     Dosage: 18 MCG
     Route: 055
     Dates: start: 20050101, end: 20090601
  2. CLONAZEPAM [Concomitant]
  3. ADVAIR DISKUS 100/50 [Concomitant]
  4. ALBUTEROL SULFATE AUTOHALER [Concomitant]
  5. ASPIRIN [Concomitant]
  6. THEOPHYLLINE [Concomitant]
  7. TRAZODONA [Concomitant]
  8. FLUTICASONE PROPIONATE [Concomitant]
  9. PROVENTIL-HFA [Concomitant]
  10. ATROVENT [Concomitant]
  11. PULMICORT [Concomitant]
  12. IPRATROPIUM BROMIDE [Concomitant]
  13. OXYGEN [Concomitant]

REACTIONS (6)
  - BRONCHITIS [None]
  - CONSTIPATION [None]
  - DYSURIA [None]
  - HYPERSENSITIVITY [None]
  - HYPERTENSION [None]
  - HYPOTHYROIDISM [None]
